FAERS Safety Report 6767414-6 (Version None)
Quarter: 2010Q2

REPORT INFORMATION
  Report Type: 
  Country: None (occurrence: None)
  Receive Date: 20100611
  Receipt Date: 20100611
  Transmission Date: 20101027
  Serious: No
  Sender: FDA-Public Use
  Company Number: None

PATIENT
  Age: 57 Year
  Sex: Female
  Weight: 51.7101 kg

DRUGS (1)
  1. NITROFURANTOIN [Suspect]
     Indication: URINARY TRACT INFECTION
     Dosage: 1 CAPSULE TWICE DAILY PO
     Route: 048
     Dates: start: 20100520, end: 20100526

REACTIONS (10)
  - CHEST PAIN [None]
  - CHILLS [None]
  - COUGH [None]
  - DECREASED APPETITE [None]
  - HYPOAESTHESIA [None]
  - MALAISE [None]
  - MYALGIA [None]
  - PARAESTHESIA [None]
  - PYREXIA [None]
  - SKIN DISCOLOURATION [None]
